FAERS Safety Report 4907223-3 (Version None)
Quarter: 2006Q1

REPORT INFORMATION
  Report Type: 
  Country: None (occurrence: None)
  Receive Date: 20060207
  Receipt Date: 20060126
  Transmission Date: 20060701
  Serious: Yes (Hospitalization)
  Sender: FDA-Public Use
  Company Number: 200610514BWH

PATIENT
  Age: 78 Year
  Sex: Male

DRUGS (5)
  1. SORAFENIB [Suspect]
     Indication: METASTATIC RENAL CELL CARCINOMA
     Dosage: SEE IMAGE
     Route: 048
     Dates: start: 20051201, end: 20060111
  2. SORAFENIB [Suspect]
     Indication: METASTATIC RENAL CELL CARCINOMA
     Dosage: SEE IMAGE
     Route: 048
     Dates: start: 20060114
  3. BLOOD PRESSURE MEDICATION [Concomitant]
  4. CHOLESTEROL [Concomitant]
  5. NITRO [Concomitant]

REACTIONS (5)
  - ANOREXIA [None]
  - LOSS OF CONSCIOUSNESS [None]
  - MICTURITION FREQUENCY DECREASED [None]
  - PAIN [None]
  - PAIN IN EXTREMITY [None]
